FAERS Safety Report 15425287 (Version 1)
Quarter: 2018Q3

REPORT INFORMATION
  Report Type: Report from Study
  Country: AR (occurrence: AR)
  Receive Date: 20180925
  Receipt Date: 20180925
  Transmission Date: 20181010
  Serious: Yes (Death, Hospitalization)
  Sender: FDA-Public Use
  Company Number: PHHY2018AR099891

PATIENT
  Age: 62 Year
  Sex: Male

DRUGS (1)
  1. ENTRESTO [Suspect]
     Active Substance: SACUBITRIL\VALSARTAN
     Indication: CARDIAC FAILURE
     Dosage: 100 MG (HALF TABLET), Q12H
     Route: 065

REACTIONS (5)
  - Dysphagia [Fatal]
  - Wrong technique in product usage process [Fatal]
  - Gait inability [Fatal]
  - Drug prescribing error [Fatal]
  - Brain neoplasm [Fatal]

NARRATIVE: CASE EVENT DATE: 201802
